FAERS Safety Report 9246956 (Version 1)
Quarter: 2013Q2

REPORT INFORMATION
  Report Type: Spontaneous
  Country: US (occurrence: US)
  Receive Date: 20130422
  Receipt Date: 20130422
  Transmission Date: 20140414
  Serious: Yes (Hospitalization, Other)
  Sender: FDA-Public Use
  Company Number: US-AMGEN-USASP2013027570

PATIENT
  Age: 44 Year
  Sex: Male

DRUGS (1)
  1. ENBREL [Suspect]
     Indication: PSORIATIC ARTHROPATHY
     Dosage: UNK MG, QWK
     Dates: start: 20050501

REACTIONS (7)
  - Atrial fibrillation [Recovered/Resolved]
  - Localised infection [Recovered/Resolved]
  - Cellulitis [Recovered/Resolved]
  - Staphylococcal infection [Recovered/Resolved]
  - Arthralgia [Not Recovered/Not Resolved]
  - Skin disorder [Not Recovered/Not Resolved]
  - Injection site pain [Recovered/Resolved]
